FAERS Safety Report 13913408 (Version 1)
Quarter: 2017Q3

REPORT INFORMATION
  Report Type: Spontaneous
  Country: US (occurrence: US)
  Receive Date: 20170828
  Receipt Date: 20170828
  Transmission Date: 20171127
  Serious: No
  Sender: FDA-Public Use
  Company Number: US-ROCHE-1130612

PATIENT
  Sex: Male

DRUGS (2)
  1. NUTROPIN [Suspect]
     Active Substance: SOMATROPIN
     Indication: NEPHROTIC SYNDROME
  2. NUTROPIN [Suspect]
     Active Substance: SOMATROPIN
     Indication: GLOMERULONEPHRITIS

REACTIONS (1)
  - Fluid retention [Unknown]
